FAERS Safety Report 6981769-9 (Version None)
Quarter: 2010Q3

REPORT INFORMATION
  Report Type: 
  Country: None (occurrence: None)
  Receive Date: 20100914
  Receipt Date: 20091022
  Transmission Date: 20110219
  Serious: No
  Sender: FDA-Public Use
  Company Number: US-PFIZER INC-2009258648

PATIENT
  Sex: Female
  Weight: 61.7 kg

DRUGS (4)
  1. LYRICA [Suspect]
     Indication: FIBROMYALGIA
     Dosage: 75 MG, 2X/DAY
     Dates: start: 20080101, end: 20080101
  2. NEURONTIN [Suspect]
     Indication: FIBROMYALGIA
     Dosage: 600 MG AT NIGHT
     Dates: start: 20090101, end: 20090701
  3. NEURONTIN [Suspect]
     Indication: HEADACHE
  4. LORAZEPAM [Concomitant]
     Indication: ANXIETY
     Dosage: UNK

REACTIONS (1)
  - SKIN REACTION [None]
